FAERS Safety Report 6411679-7 (Version None)
Quarter: 2009Q4

REPORT INFORMATION
  Report Type: 
  Country: None (occurrence: None)
  Receive Date: 20091023
  Receipt Date: 20091014
  Transmission Date: 20100525
  Serious: Yes (Other)
  Sender: FDA-Public Use
  Company Number: PHHY2009BR37629

PATIENT
  Age: 4 Year
  Sex: Female

DRUGS (2)
  1. TRILEPTAL [Suspect]
     Dosage: UNK
  2. TRILEPTAL [Suspect]
     Dosage: UNK
     Dates: start: 20090902

REACTIONS (2)
  - CONVULSION [None]
  - MUSCLE SPASMS [None]
